FAERS Safety Report 10846488 (Version 3)
Quarter: 2015Q1

REPORT INFORMATION
  Report Type: Spontaneous
  Country: GB (occurrence: GB)
  Receive Date: 20150220
  Receipt Date: 20150304
  Transmission Date: 20150721
  Serious: Yes (Other)
  Sender: FDA-Public Use
  Company Number: GB-009507513-1502GBR008983

PATIENT
  Sex: Female

DRUGS (1)
  1. TRUSOPT [Suspect]
     Active Substance: DORZOLAMIDE HYDROCHLORIDE
     Dosage: 3 X A DAY IN ONE EYE, IN WHICH THE PRESSURE IS PARITICULARY HIGH, 2 X A DAY INTO THE OTHER EYE
     Route: 047
     Dates: start: 201408

REACTIONS (6)
  - Neurosis [Unknown]
  - Superficial injury of eye [Unknown]
  - Product quality issue [Unknown]
  - Blindness unilateral [Unknown]
  - Nervousness [Unknown]
  - Anxiety [Unknown]
